FAERS Safety Report 7265724-X (Version None)
Quarter: 2011Q1

REPORT INFORMATION
  Report Type: 
  Country: None (occurrence: None)
  Receive Date: 20110131
  Receipt Date: 20110117
  Transmission Date: 20110831
  Serious: Yes (Life-Threatening, Hospitalization)
  Sender: FDA-Public Use
  Company Number: US-ELI_LILLY_AND_COMPANY-US201007005370

PATIENT
  Sex: Female

DRUGS (15)
  1. SIMVASTATIN [Concomitant]
     Dosage: 40 MG, AT NIGHT
     Route: 065
  2. ACYCLOVIR [Concomitant]
     Dosage: 400 MG, 5 TIMES A DAY FOR HER LEDT EYE
     Route: 065
  3. LISINOPRIL [Concomitant]
     Dosage: 20 MG, DAILY (1/D)
     Route: 065
  4. FORTEO [Suspect]
     Dosage: 20 UG, DAILY (1/D)
  5. TRAZODONE HCL [Concomitant]
     Dosage: 150 MG, AT NIGHT
     Route: 065
  6. NORVASC [Concomitant]
     Dosage: 10 MG, DAILY (1/D)
     Route: 065
  7. FORTEO [Suspect]
     Dosage: 20 UG, DAILY (1/D)
  8. METHADONE HCL [Concomitant]
     Dosage: 10 MG, 3/D
     Route: 065
  9. FORTEO [Suspect]
     Indication: OSTEOPOROSIS
     Dosage: 20 UG, DAILY (1/D)
     Dates: start: 20100714
  10. LORAZEPAM [Concomitant]
     Dosage: 1 MG, DAILY (1/D)
     Route: 065
  11. LEXAPRO [Concomitant]
     Dosage: 20 MG, DAILY (1/D)
     Route: 065
  12. LYRICA [Concomitant]
     Dosage: 150 MG, 2/D
     Route: 065
  13. AMBIEN [Concomitant]
     Dosage: 12.5 MG, AT NIGHT
     Route: 065
  14. VIROPTIC [Concomitant]
     Dosage: UNK, 5 TIMES A DAY TO THE LEFT EYE
     Route: 065
  15. VITAMIN D [Concomitant]
     Dosage: 50000 U, 3/W ON MONDAY, WEDNESDAY AND FRIDAY
     Route: 065

REACTIONS (15)
  - FATIGUE [None]
  - DRUG DOSE OMISSION [None]
  - ASPHYXIA [None]
  - PNEUMONIA [None]
  - MEMORY IMPAIRMENT [None]
  - SENSORY DISTURBANCE [None]
  - STRESS [None]
  - NAUSEA [None]
  - HERPES SIMPLEX [None]
  - FALL [None]
  - DIZZINESS [None]
  - EYE INFECTION [None]
  - HYPOVITAMINOSIS [None]
  - HEADACHE [None]
  - VISUAL ACUITY REDUCED [None]
